FAERS Safety Report 7605701-X (Version None)
Quarter: 2011Q3

REPORT INFORMATION
  Report Type: 
  Country: None (occurrence: None)
  Receive Date: 20110713
  Receipt Date: 20110711
  Transmission Date: 20111222
  Serious: Yes (Other)
  Sender: FDA-Public Use
  Company Number: JP-PFIZER INC-2011156271

PATIENT
  Age: 56 Year
  Sex: Male

DRUGS (14)
  1. DIAZEPAM [Concomitant]
     Dosage: 16 MG/DAY
  2. VARENICLINE TARTRATE [Suspect]
     Dosage: UNK
     Route: 048
     Dates: start: 20110419
  3. CLONAZEPAM [Concomitant]
     Dosage: 5 MG/DAY
  4. HALCION [Concomitant]
     Dosage: 0.25 MG/DAY
  5. FAMOTIDINE [Concomitant]
     Dosage: 40 MG/DAY
  6. TS-1 [Concomitant]
     Dosage: 20 MG, 2X/DAY
  7. TEGRETOL [Concomitant]
     Dosage: 800 MG/DAY
  8. PHENYTOIN [Concomitant]
     Dosage: 12 MG/DAY
  9. GABAPENTIN [Concomitant]
     Dosage: 400 MG, 3X/DAY
  10. LOXONIN [Concomitant]
     Dosage: 60 MG, 2X/DAY
  11. TANNALBIN [Concomitant]
     Dosage: 1 G, 3X/DAY
  12. RISUMIC [Concomitant]
     Dosage: 20 MG/DAY
  13. MUCOSTA [Concomitant]
     Dosage: 100 MG, 2X/DAY
  14. ACETAMINOPHEN [Concomitant]
     Dosage: 200 MG, 2X/DAY

REACTIONS (2)
  - LOSS OF CONSCIOUSNESS [None]
  - FALL [None]
